FAERS Safety Report 13089390 (Version 6)
Quarter: 2017Q3

REPORT INFORMATION
  Report Type: Spontaneous
  Country: US (occurrence: US)
  Receive Date: 20170105
  Receipt Date: 20170714
  Transmission Date: 20171127
  Serious: No
  Sender: FDA-Public Use
  Company Number: US-PFIZER INC-2016602899

PATIENT
  Age: 48 Year
  Sex: Female

DRUGS (12)
  1. MORPHINE SULFATE. [Concomitant]
     Active Substance: MORPHINE SULFATE
     Dosage: UNK
  2. IBRANCE [Suspect]
     Active Substance: PALBOCICLIB
     Dosage: 100 MG, 1 CAPSULE CYCLIC (EVERY DAY FOR 21 DAYS, 7 DAYS OFF TAKE WITH FOOD)
     Route: 048
     Dates: end: 20170311
  3. LETROZOLE. [Concomitant]
     Active Substance: LETROZOLE
     Dosage: UNK
  4. IBRANCE [Suspect]
     Active Substance: PALBOCICLIB
     Indication: BREAST CANCER FEMALE
     Dosage: 125 MG, CYCLIC (ONCE DAILY 21 DAYS ON 7 DAYS OFF)
     Route: 048
  5. VITAMIN D3 [Concomitant]
     Active Substance: CHOLECALCIFEROL
     Dosage: UNK
  6. ALPRAZOLAM. [Concomitant]
     Active Substance: ALPRAZOLAM
     Dosage: UNK
  7. IBRANCE [Suspect]
     Active Substance: PALBOCICLIB
     Dosage: 75 MG, CYCLIC (EVERY DAY FOR 21 DAYS THEN 7 DAYS OFF)
     Route: 048
  8. HYDROCODONE/ACETAMINOPHEN [Concomitant]
     Active Substance: ACETAMINOPHEN\HYDROCODONE
     Dosage: UNK
  9. CEPHALEXINE [Concomitant]
     Active Substance: CEPHALEXIN
     Dosage: UNK
  10. VITAMIN C [Concomitant]
     Active Substance: ASCORBIC ACID
     Dosage: UNK
  11. ZOMETA [Concomitant]
     Active Substance: ZOLEDRONIC ACID
     Dosage: UNK
  12. ZOLADEX [Concomitant]
     Active Substance: GOSERELIN ACETATE
     Dosage: UNK

REACTIONS (6)
  - Breast pain [Unknown]
  - Neutrophil count decreased [Not Recovered/Not Resolved]
  - Fatigue [Unknown]
  - Dizziness [Unknown]
  - Back pain [Unknown]
  - White blood cell count decreased [Unknown]
